FAERS Safety Report 5602117-2 (Version None)
Quarter: 2008Q1

REPORT INFORMATION
  Report Type: 
  Country: None (occurrence: None)
  Receive Date: 20080125
  Receipt Date: 20080121
  Transmission Date: 20080703
  Serious: Yes (Life-Threatening, Hospitalization)
  Sender: FDA-Public Use
  Company Number: PHHY2008JP00537

PATIENT
  Age: 67 Year
  Sex: Male
  Weight: 56 kg

DRUGS (2)
  1. VOLTAREN [Suspect]
     Indication: PYREXIA
     Dosage: 25 MG/ DAY
     Route: 054
     Dates: start: 20071223
  2. LECTISOL [Suspect]
     Indication: PROPHYLAXIS
     Dosage: 75 MG/DAY
     Route: 048
     Dates: start: 20071211, end: 20071223

REACTIONS (5)
  - ALTERED STATE OF CONSCIOUSNESS [None]
  - ERYTHEMA [None]
  - PYREXIA [None]
  - RASH [None]
  - TOXIC EPIDERMAL NECROLYSIS [None]
